FAERS Safety Report 6371538-5 (Version None)
Quarter: 2009Q3

REPORT INFORMATION
  Report Type: 
  Country: None (occurrence: None)
  Receive Date: 20090923
  Receipt Date: 20080418
  Transmission Date: 20100115
  Serious: Yes (Other)
  Sender: FDA-Public Use
  Company Number: US-ASTRAZENECA-2007UW25111

PATIENT
  Age: 442 Month
  Sex: Female
  Weight: 111 kg

DRUGS (7)
  1. SEROQUEL [Suspect]
     Indication: ANXIETY
     Dosage: 25MG-300MG
     Route: 048
     Dates: start: 20050201, end: 20061201
  2. SEROQUEL [Suspect]
     Indication: DEPRESSION
     Dosage: 25MG-300MG
     Route: 048
     Dates: start: 20050201, end: 20061201
  3. LISINOPRIL [Concomitant]
     Dates: start: 20070131
  4. TRAZODONE [Concomitant]
     Dates: start: 20070306
  5. CYMBALTA [Concomitant]
     Dates: start: 20070328
  6. ABILIFY [Concomitant]
     Dates: start: 20070328
  7. ZOCOR [Concomitant]
     Dates: start: 20070328

REACTIONS (3)
  - DIABETES MELLITUS [None]
  - DIABETES MELLITUS INADEQUATE CONTROL [None]
  - TYPE 2 DIABETES MELLITUS [None]
